FAERS Safety Report 8290249-2 (Version None)
Quarter: 2012Q2

REPORT INFORMATION
  Report Type: 
  Country: None (occurrence: None)
  Receive Date: 20120412
  Receipt Date: 20120412
  Transmission Date: 20120825
  Serious: No
  Sender: FDA-Public Use
  Company Number: None

PATIENT
  Sex: Female

DRUGS (1)
  1. AMPYRA [Suspect]
     Dosage: 10 MG PO TAKE 1 TABLET BY MOUTH EVERY 12 HOURS
     Route: 048

REACTIONS (1)
  - PALPITATIONS [None]
